FAERS Safety Report 21755865 (Version 3)
Quarter: 2024Q4

REPORT INFORMATION
  Report Type: Spontaneous
  Country: CA (occurrence: CA)
  Receive Date: 20221220
  Receipt Date: 20241017
  Transmission Date: 20250114
  Serious: Yes (Hospitalization, Other)
  Sender: TAKEDA
  Company Number: CA-TAKEDA-2022TUS098172

PATIENT
  Sex: Male

DRUGS (25)
  1. MESALAMINE [Suspect]
     Active Substance: MESALAMINE
     Indication: Colitis ulcerative
     Dosage: 1 GRAM, BID
     Route: 048
     Dates: start: 2013, end: 2014
  2. MESALAMINE [Suspect]
     Active Substance: MESALAMINE
     Dosage: UNK
     Route: 065
     Dates: start: 20130319, end: 20131010
  3. MESALAMINE [Suspect]
     Active Substance: MESALAMINE
     Dosage: 2 GRAM, BID
     Route: 048
     Dates: start: 2014, end: 2019
  4. MESALAMINE [Suspect]
     Active Substance: MESALAMINE
     Dosage: 1 GRAM, BID
     Route: 048
     Dates: end: 2019
  5. MESALAMINE [Suspect]
     Active Substance: MESALAMINE
     Dosage: UNK
     Route: 065
  6. METHOTREXATE [Suspect]
     Active Substance: METHOTREXATE
     Indication: Product used for unknown indication
     Dosage: UNK
     Route: 065
  7. METHOTREXATE [Suspect]
     Active Substance: METHOTREXATE
     Dosage: 15 MILLIGRAM, 1/WEEK
     Route: 065
     Dates: start: 2017
  8. PREDNISONE [Suspect]
     Active Substance: PREDNISONE
     Indication: Product used for unknown indication
     Dosage: UNK
     Route: 065
  9. PREDNISONE [Suspect]
     Active Substance: PREDNISONE
     Dosage: 15 MILLIGRAM, QD
     Route: 065
  10. PREDNISONE [Suspect]
     Active Substance: PREDNISONE
     Dosage: 25 MILLIGRAM, QD
     Route: 065
  11. PREDNISONE [Suspect]
     Active Substance: PREDNISONE
     Dosage: 10 MILLIGRAM, QD
     Route: 065
  12. PREDNISONE [Suspect]
     Active Substance: PREDNISONE
     Dosage: 40 MILLIGRAM, QD
     Route: 065
  13. PREDNISONE [Suspect]
     Active Substance: PREDNISONE
     Dosage: UNK
     Route: 065
     Dates: start: 2016, end: 2019
  14. PREDNISONE [Suspect]
     Active Substance: PREDNISONE
     Dosage: 15 MILLIGRAM, QD
     Route: 065
  15. PREDNISONE [Suspect]
     Active Substance: PREDNISONE
     Dosage: UNK
     Route: 065
  16. PREDNISONE [Suspect]
     Active Substance: PREDNISONE
     Dosage: 40 MILLIGRAM, QD
     Route: 065
  17. PREDNISONE [Suspect]
     Active Substance: PREDNISONE
     Dosage: 10 MILLIGRAM, QD
     Route: 065
  18. PREDNISONE [Suspect]
     Active Substance: PREDNISONE
     Dosage: 25 MILLIGRAM, QD
     Route: 065
  19. IMURAN [Concomitant]
     Active Substance: AZATHIOPRINE
     Dosage: UNK
     Route: 065
     Dates: start: 2018
  20. CANNABIS SATIVA SUBSP. INDICA TOP [Concomitant]
     Active Substance: CANNABIS SATIVA SUBSP. INDICA TOP
     Dosage: UNK
     Route: 065
     Dates: start: 2018
  21. FOLATE SODIUM [Concomitant]
     Active Substance: FOLATE SODIUM
     Dosage: UNK
     Route: 065
     Dates: start: 20181106, end: 2019
  22. CORTIFOAM [Concomitant]
     Active Substance: HYDROCORTISONE ACETATE
     Dosage: UNK
     Route: 065
     Dates: start: 2013, end: 2014
  23. AZATHIOPRINE SODIUM [Concomitant]
     Active Substance: AZATHIOPRINE SODIUM
     Indication: Product used for unknown indication
     Dosage: UNK
     Route: 042
  24. CANNABIS SATIVA FLOWERING TOP [Concomitant]
     Active Substance: CANNABIS SATIVA FLOWERING TOP
     Indication: Product used for unknown indication
     Dosage: UNK
     Route: 065
  25. FOLIC ACID [Concomitant]
     Active Substance: FOLIC ACID
     Indication: Product used for unknown indication
     Dosage: UNK
     Route: 065

REACTIONS (19)
  - Abdominal discomfort [Unknown]
  - Abdominal distension [Unknown]
  - Colitis [Unknown]
  - Colitis ulcerative [Recovering/Resolving]
  - Diarrhoea [Unknown]
  - Diverticulum [Unknown]
  - Drug resistance [Unknown]
  - Dyspepsia [Unknown]
  - Erectile dysfunction [Unknown]
  - Fatigue [Unknown]
  - Flatulence [Unknown]
  - Gastrooesophageal reflux disease [Unknown]
  - Haematochezia [Unknown]
  - Hepatic steatosis [Unknown]
  - Job dissatisfaction [Unknown]
  - Treatment noncompliance [Unknown]
  - Nephrolithiasis [Unknown]
  - Testicular disorder [Unknown]
  - Therapeutic response decreased [Recovered/Resolved]

NARRATIVE: CASE EVENT DATE: 20130101
